FAERS Safety Report 5860668-X (Version None)
Quarter: 2008Q3

REPORT INFORMATION
  Report Type: 
  Country: None (occurrence: None)
  Receive Date: 20080827
  Receipt Date: 20080122
  Transmission Date: 20090109
  Serious: No
  Sender: FDA-Public Use
  Company Number: US-ABBOTT-07P-163-0421091-00

PATIENT
  Age: 80 Year
  Sex: Male

DRUGS (3)
  1. NIASPAN [Suspect]
     Indication: DRUG USE FOR UNKNOWN INDICATION
  2. PIOGLITAZONE [Suspect]
     Indication: DRUG USE FOR UNKNOWN INDICATION
  3. TIABENDAZOLE [Concomitant]
     Indication: DRUG USE FOR UNKNOWN INDICATION

REACTIONS (4)
  - DIZZINESS [None]
  - FALL [None]
  - MUSCULAR WEAKNESS [None]
  - PAIN [None]
